FAERS Safety Report 4945563-2 (Version None)
Quarter: 2006Q1

REPORT INFORMATION
  Report Type: 
  Country: None (occurrence: None)
  Receive Date: 20060117
  Receipt Date: 20051031
  Transmission Date: 20060701
  Serious: Yes (Hospitalization)
  Sender: FDA-Public Use
  Company Number: A03200503471

PATIENT
  Age: 91 Year
  Sex: Male

DRUGS (4)
  1. PLAVIX [Suspect]
     Indication: STENT PLACEMENT
     Dosage: ORAL
     Route: 048
     Dates: start: 20051001
  2. PLAVIX [Suspect]
     Indication: THERAPEUTIC PROCEDURE
     Dosage: ORAL
     Route: 048
     Dates: start: 20051001
  3. INTEGRILIN [Suspect]
     Indication: STENT PLACEMENT
     Dosage: ORAL
     Route: 048
     Dates: start: 20051001
  4. INTEGRILIN [Suspect]
     Indication: THERAPEUTIC PROCEDURE
     Dosage: ORAL
     Route: 048
     Dates: start: 20051001

REACTIONS (3)
  - HAEMORRHAGE [None]
  - PETECHIAE [None]
  - PLATELET COUNT DECREASED [None]
